FAERS Safety Report 9946398 (Version 1)
Quarter: 2014Q1

REPORT INFORMATION
  Report Type: Spontaneous
  Country: US (occurrence: US)
  Receive Date: 20140303
  Receipt Date: 20140303
  Transmission Date: 20141002
  Serious: No
  Sender: FDA-Public Use
  Company Number: US-AMGEN-USASP2013091228

PATIENT
  Age: 58 Year
  Sex: Male
  Weight: 83.9 kg

DRUGS (7)
  1. ENBREL [Suspect]
     Indication: PRODUCT USED FOR UNKNOWN INDICATION
     Dosage: 50 MG, QWK
     Route: 058
  2. CLINORIL [Concomitant]
     Dosage: 200 MG, UNK
  3. FOLIC ACID [Concomitant]
     Dosage: UNK
  4. SYNTHROID [Concomitant]
     Dosage: 25 MUG, UNK
  5. ZOCOR [Concomitant]
     Dosage: 5 MG, UNK
  6. METHOTREXATE [Concomitant]
     Dosage: UNK
  7. FISH OIL [Concomitant]
     Dosage: UNK

REACTIONS (1)
  - Rheumatoid arthritis [Unknown]
